FAERS Safety Report 5122054-X (Version None)
Quarter: 2006Q4

REPORT INFORMATION
  Report Type: 
  Country: None (occurrence: None)
  Receive Date: 20061004
  Receipt Date: 20061004
  Transmission Date: 20070319
  Serious: No
  Sender: FDA-Public Use
  Company Number: None

PATIENT
  Age: 30 Year
  Sex: Male

DRUGS (1)
  1. BACTRIM DS [Suspect]
     Indication: ABSCESS
     Dosage: 2 TABS  BID  PO
     Route: 048
     Dates: start: 20060926, end: 20060929

REACTIONS (3)
  - LYMPHADENOPATHY [None]
  - PRURITUS [None]
  - PYREXIA [None]
